FAERS Safety Report 4358906-8 (Version None)
Quarter: 2004Q2

REPORT INFORMATION
  Report Type: 
  Country: None (occurrence: None)
  Receive Date: 20040511
  Receipt Date: 20040430
  Transmission Date: 20050107
  Serious: Yes (Death)
  Sender: FDA-Public Use
  Company Number: KII-2002-0009941

PATIENT
  Age: 57 Year
  Sex: Female

DRUGS (24)
  1. OXYCONTIN [Suspect]
     Indication: CANCER PAIN
     Dosage: 300 MG, Q12H, ORAL
     Route: 048
  2. OXYCODONE HCL [Suspect]
     Dosage: 10 MG, SEE TEXT
  3. ALPRAZOLAM [Concomitant]
  4. ALLEGRA [Concomitant]
  5. ALBUTEROL SULFATE [Concomitant]
  6. ATROVENT [Concomitant]
  7. COMPAZINE [Concomitant]
  8. COUMADIN [Concomitant]
  9. BENADRYL [Concomitant]
  10. DULCOLAX [Concomitant]
  11. FUROSEMIDE [Concomitant]
  12. HUMULIN 70/30 [Concomitant]
  13. LACTULOSE [Concomitant]
  14. REGLAN [Concomitant]
  15. MILK OF MAGNESIA (MAGNESIUM HYDROXIDE) [Concomitant]
  16. M.V.I. (ERGOCALCIFEROL, ASCORBIC ACID, TOCOPHEROL, PYRIDOXINE HYDROCHL [Concomitant]
  17. NITE-TIME COLD MEDICINE (DEXTROMETHORPHAN HYDROBROMIDE, PSEUDOEPHEDRIN [Concomitant]
  18. PAXIL [Concomitant]
  19. PERI-COLACE [Concomitant]
  20. PREVACID [Concomitant]
  21. PULMICORT [Concomitant]
  22. SYNTHROID [Concomitant]
  23. XOPENEX [Concomitant]
  24. ZOFRAN [Concomitant]

REACTIONS (1)
  - LUNG CANCER METASTATIC [None]
